FAERS Safety Report 18149633 (Version 1)
Quarter: 2020Q3

REPORT INFORMATION
  Report Type: Spontaneous
  Country: CA (occurrence: CA)
  Receive Date: 20200814
  Receipt Date: 20200814
  Transmission Date: 20201103
  Serious: Yes (Death, Hospitalization)
  Sender: FDA-Public Use
  Company Number: CA-TEVA-2020-CA-1813414

PATIENT
  Age: 50 Year
  Sex: Female
  Weight: 73 kg

DRUGS (5)
  1. BEVACIZUMAB. [Suspect]
     Active Substance: BEVACIZUMAB
     Route: 042
  2. DILANTIN [Concomitant]
     Active Substance: PHENYTOIN
     Route: 065
  3. BEVACIZUMAB. [Suspect]
     Active Substance: BEVACIZUMAB
     Indication: GLIOBLASTOMA
     Route: 065
  4. FENTANYL. [Concomitant]
     Active Substance: FENTANYL
     Route: 065
  5. TEMOZOLOMIDE. [Suspect]
     Active Substance: TEMOZOLOMIDE
     Indication: PRODUCT USED FOR UNKNOWN INDICATION
     Route: 065

REACTIONS (11)
  - Asthenia [Fatal]
  - Fatigue [Fatal]
  - Infrequent bowel movements [Fatal]
  - Seizure [Fatal]
  - Weight increased [Fatal]
  - Blood count abnormal [Fatal]
  - Blood pressure increased [Fatal]
  - Tongue ulceration [Fatal]
  - Coagulation time prolonged [Fatal]
  - Nausea [Fatal]
  - Headache [Fatal]
